FAERS Safety Report 10994038 (Version 1)
Quarter: 2015Q2

REPORT INFORMATION
  Report Type: Spontaneous
  Country: US (occurrence: None)
  Receive Date: 20150406
  Receipt Date: 20150406
  Transmission Date: 20150821
  Serious: No
  Sender: FDA-Public Use
  Company Number: None

PATIENT
  Age: 39 Year
  Sex: Female
  Weight: 73.48 kg

DRUGS (13)
  1. ZESTRIL [Concomitant]
     Active Substance: LISINOPRIL
  2. XANAX [Concomitant]
     Active Substance: ALPRAZOLAM
  3. BUTAL-CAFE-ACE [Concomitant]
  4. TROKENDI XR [Concomitant]
     Active Substance: TOPIRAMATE
  5. SYNTHROID [Concomitant]
     Active Substance: LEVOTHYROXINE SODIUM
  6. COSAMIND [Concomitant]
  7. BUTRANS [Suspect]
     Active Substance: BUPRENORPHINE
     Dosage: 1 PATCH LAST 7 DAY APPLIED AS MEDICATED PATCH TO SKIN
     Route: 061
     Dates: start: 20150404, end: 20150404
  8. PANTOPRAZOLE [Concomitant]
     Active Substance: PANTOPRAZOLE SODIUM
  9. BUSFAR [Concomitant]
  10. VYTORIN [Concomitant]
     Active Substance: EZETIMIBE\SIMVASTATIN
  11. NORVACE [Concomitant]
  12. CYMBALTA [Concomitant]
     Active Substance: DULOXETINE HYDROCHLORIDE
  13. VITAMIN D [Concomitant]
     Active Substance: CHOLECALCIFEROL

REACTIONS (7)
  - Emotional distress [None]
  - Panic attack [None]
  - Dyspnoea [None]
  - Feeling abnormal [None]
  - Fatigue [None]
  - Feeling hot [None]
  - Feeling of body temperature change [None]

NARRATIVE: CASE EVENT DATE: 20150404
